FAERS Safety Report 5580112-X (Version None)
Quarter: 2008Q1

REPORT INFORMATION
  Report Type: 
  Country: None (occurrence: None)
  Receive Date: 20080103
  Receipt Date: 20071228
  Transmission Date: 20080703
  Serious: Yes (Other)
  Sender: FDA-Public Use
  Company Number: US-JNJFOC-20071101641

PATIENT
  Sex: Male
  Weight: 95.71 kg

DRUGS (1)
  1. REMICADE [Suspect]
     Indication: PYODERMA GANGRENOSUM
     Route: 042

REACTIONS (2)
  - ASTHENIA [None]
  - DELIRIUM [None]
